FAERS Safety Report 4762010-4 (Version None)
Quarter: 2005Q3

REPORT INFORMATION
  Report Type: 
  Country: None (occurrence: None)
  Receive Date: 20050831
  Receipt Date: 20050503
  Transmission Date: 20060218
  Serious: No
  Sender: FDA-Public Use
  Company Number: PHEH2005US05085

PATIENT
  Age: 59 Year
  Sex: Female

DRUGS (9)
  1. ENABLEX [Suspect]
     Indication: INCONTINENCE
     Dosage: 7.5 MG QD
     Dates: start: 20050425
  2. SULFAMETHOXAZOLE + TRIMETHOPRIM [Suspect]
     Indication: INCONTINENCE
     Dosage: 7.5 MG QD
     Dates: start: 20050425
  3. SULFAMETHOXAZOLE + TRIMETHOPRIM [Suspect]
     Dates: start: 20050426
  4. ZOCOR [Concomitant]
  5. LOTREL [Concomitant]
  6. REQUIP (ROPINROLE HYDROCHLORIDE) [Concomitant]
  7. VITAMINS(NO INGREDIENTS/SUBSTANCES) [Concomitant]
  8. IMIPREX (IMIPRAMINOXIDE HYDROCHLORIDE) [Concomitant]
  9. EFFEXOR [Concomitant]

REACTIONS (10)
  - ABDOMINAL PAIN [None]
  - CONSTIPATION [None]
  - CULTURE URINE POSITIVE [None]
  - DIZZINESS [None]
  - DRY MOUTH [None]
  - FATIGUE [None]
  - HYPERSENSITIVITY [None]
  - NAUSEA [None]
  - PYREXIA [None]
  - RASH [None]
